FAERS Safety Report 8814053 (Version 1)
Quarter: 2012Q4

REPORT INFORMATION
  Report Type: Spontaneous
  Country: US (occurrence: None)
  Receive Date: 20120926
  Receipt Date: 20120926
  Transmission Date: 20130627
  Serious: No
  Sender: FDA-Public Use
  Company Number: None

PATIENT
  Age: 64 Year
  Sex: Male
  Weight: 68.6 kg

DRUGS (2)
  1. HEPARIN [Suspect]
     Indication: VENOUS THROMBOEMBOLISM PROPHYLAXIS
     Dosage: 1200 UNITS Per Hour
     Route: 042
     Dates: start: 20120417, end: 20120430
  2. WARFARIN [Suspect]
     Dates: start: 20120427, end: 20120430

REACTIONS (4)
  - Hypotension [None]
  - Nausea [None]
  - Vomiting [None]
  - Abdominal wall haematoma [None]
